FAERS Safety Report 4285186-4 (Version None)
Quarter: 2004Q1

REPORT INFORMATION
  Report Type: 
  Country: None (occurrence: None)
  Receive Date: 20040204
  Receipt Date: 20031022
  Transmission Date: 20041129
  Serious: Yes (Disabling)
  Sender: FDA-Public Use
  Company Number: US-ROCHE-349973

PATIENT
  Age: 24 Year
  Sex: Female
  Weight: 110.7 kg

DRUGS (2)
  1. ACCUTANE [Suspect]
     Indication: ACNE
     Dosage: DOSE REPORTED AS 20/40.
     Route: 048
     Dates: start: 20010730, end: 20011217
  2. BIRTH CONTROL PILLS [Concomitant]
     Route: 048

REACTIONS (7)
  - ANXIETY [None]
  - ARTHRALGIA [None]
  - DEPRESSION [None]
  - GASTROOESOPHAGEAL REFLUX DISEASE [None]
  - INSOMNIA [None]
  - PANIC ATTACK [None]
  - ULCER [None]
